FAERS Safety Report 18049322 (Version 1)
Quarter: 2020Q3

REPORT INFORMATION
  Report Type: Spontaneous
  Country: BG (occurrence: BG)
  Receive Date: 20200721
  Receipt Date: 20200721
  Transmission Date: 20201103
  Serious: Yes (Other)
  Sender: FDA-Public Use
  Company Number: BG-PFIZER INC-2020274667

PATIENT
  Age: 3 Year
  Sex: Male

DRUGS (14)
  1. VANCOMYCIN [Concomitant]
     Active Substance: VANCOMYCIN
     Indication: STREPTOCOCCAL SEPSIS
     Dosage: UNK
  2. SYAFEN [Concomitant]
     Indication: GAIT INABILITY
  3. SYAFEN [Concomitant]
     Indication: MUSCULAR WEAKNESS
  4. CEFZIL [Concomitant]
     Active Substance: CEFPROZIL
     Indication: PAIN IN EXTREMITY
     Dosage: UNK
  5. METHYLPREDNISOLONE ACETATE. [Suspect]
     Active Substance: METHYLPREDNISOLONE ACETATE
     Indication: HAEMOPHAGOCYTIC LYMPHOHISTIOCYTOSIS
     Dosage: 2 MG/KG, DAILY (AFTER THIRD DAY, TREATMENT IS CONTINUED WITH A DOSE 2 MG/KG/24 H FOR ANOTHER 2 DAYS)
     Route: 042
  6. CEFZIL [Concomitant]
     Active Substance: CEFPROZIL
     Indication: GAIT INABILITY
  7. PREDNISOLONE. [Suspect]
     Active Substance: PREDNISOLONE
     Indication: HAEMOPHAGOCYTIC LYMPHOHISTIOCYTOSIS
     Dosage: UNK
  8. SYAFEN [Concomitant]
     Indication: PAIN IN EXTREMITY
     Dosage: UNK
  9. CEFZIL [Concomitant]
     Active Substance: CEFPROZIL
     Indication: PYREXIA
  10. CEFZIL [Concomitant]
     Active Substance: CEFPROZIL
     Indication: RASH MACULO-PAPULAR
  11. CEFZIL [Concomitant]
     Active Substance: CEFPROZIL
     Indication: MUSCULAR WEAKNESS
  12. SYAFEN [Concomitant]
     Indication: RASH MACULO-PAPULAR
  13. MEROPENEM. [Concomitant]
     Active Substance: MEROPENEM
     Indication: STREPTOCOCCAL SEPSIS
     Dosage: UNK
  14. SYAFEN [Concomitant]
     Indication: PYREXIA

REACTIONS (7)
  - Drug hypersensitivity [Recovered/Resolved]
  - Splenomegaly [Recovered/Resolved]
  - Skin irritation [Recovered/Resolved]
  - Hepatomegaly [Recovered/Resolved]
  - Haemophagocytic lymphohistiocytosis [Recovered/Resolved]
  - Rash maculo-papular [Recovered/Resolved]
  - Rash erythematous [Recovered/Resolved]
